FAERS Safety Report 23228599 (Version 2)
Quarter: 2024Q1

REPORT INFORMATION
  Report Type: Report from Study
  Country: US (occurrence: US)
  Receive Date: 20231125
  Receipt Date: 20240117
  Transmission Date: 20240410
  Serious: Yes (Death)
  Sender: FDA-Public Use
  Company Number: US-BAYER-2023A166211

PATIENT
  Age: 80 Year
  Sex: Female

DRUGS (7)
  1. ADEMPAS [Suspect]
     Active Substance: RIOCIGUAT
     Indication: Pulmonary hypertension
     Dosage: UNK
  2. ADEMPAS [Suspect]
     Active Substance: RIOCIGUAT
     Indication: Pulmonary hypertension
     Dosage: 1 MG, TID
     Route: 048
     Dates: start: 202108, end: 20231029
  3. LASIX [Concomitant]
     Active Substance: FUROSEMIDE
  4. SPIRONOLACTONE [Concomitant]
     Active Substance: SPIRONOLACTONE
  5. NORTHIRON [CEFATRIZINE] [Concomitant]
  6. PREDNISOLONE [Concomitant]
     Active Substance: PREDNISOLONE
  7. OXYGEN [Concomitant]
     Active Substance: OXYGEN

REACTIONS (2)
  - Cardio-respiratory arrest [Fatal]
  - Disease progression [Fatal]

NARRATIVE: CASE EVENT DATE: 20231031
